FAERS Safety Report 10928373 (Version 1)
Quarter: 2015Q1

REPORT INFORMATION
  Report Type: Report from Study
  Country: CA (occurrence: CA)
  Receive Date: 20150319
  Receipt Date: 20150319
  Transmission Date: 20150721
  Serious: Yes (Life-Threatening)
  Sender: FDA-Public Use
  Company Number: CA-JNJFOC-20150310369

PATIENT
  Sex: Female
  Weight: 45.4 kg

DRUGS (2)
  1. REMICADE [Suspect]
     Active Substance: INFLIXIMAB
     Indication: CROHN^S DISEASE
     Route: 042
     Dates: start: 20140725, end: 20150223
  2. ALENDRONATE [Concomitant]
     Active Substance: ALENDRONATE SODIUM
     Route: 065

REACTIONS (1)
  - Small intestine carcinoma [Unknown]
